FAERS Safety Report 14436156 (Version 1)
Quarter: 2018Q1

REPORT INFORMATION
  Report Type: Spontaneous
  Country: US (occurrence: US)
  Receive Date: 20180124
  Receipt Date: 20180124
  Transmission Date: 20180509
  Serious: Yes (Other)
  Sender: FDA-Public Use
  Company Number: None

PATIENT
  Age: 51 Year
  Sex: Female
  Weight: 73.35 kg

DRUGS (6)
  1. GENERIC PREACID [Concomitant]
  2. STELARA [Suspect]
     Active Substance: USTEKINUMAB
     Indication: CROHN^S DISEASE
     Dosage: SUBCUTANEOUS EVERY 8 WEEKS?
     Route: 058
     Dates: start: 20170718, end: 20180103
  3. ALIGN [Concomitant]
     Active Substance: BIFIDOBACTERIUM LONGUM SUBSP. INFANTIS
  4. CYMBALTA [Concomitant]
     Active Substance: DULOXETINE HYDROCHLORIDE
  5. ELMIRON [Concomitant]
     Active Substance: PENTOSAN POLYSULFATE SODIUM
  6. VITAMIN D [Concomitant]
     Active Substance: CHOLECALCIFEROL

REACTIONS (10)
  - Hyperhidrosis [None]
  - Disturbance in attention [None]
  - Speech disorder [None]
  - Gait disturbance [None]
  - Headache [None]
  - Dysarthria [None]
  - Dysgraphia [None]
  - Serotonin syndrome [None]
  - Reading disorder [None]
  - Tremor [None]

NARRATIVE: CASE EVENT DATE: 20180115
